FAERS Safety Report 17451086 (Version 2)
Quarter: 2021Q1

REPORT INFORMATION
  Report Type: Spontaneous
  Country: US (occurrence: US)
  Receive Date: 20200224
  Receipt Date: 20210315
  Transmission Date: 20210419
  Serious: Yes (Other)
  Sender: FDA-Public Use
  Company Number: US-PFIZER INC-2020074235

PATIENT
  Age: 57 Year
  Sex: Female
  Weight: 118.8 kg

DRUGS (6)
  1. NALBUPHINE HYDROCHLORIDE. [Suspect]
     Active Substance: NALBUPHINE HYDROCHLORIDE
     Indication: INTERVERTEBRAL DISC PROTRUSION
  2. NALBUPHINE HYDROCHLORIDE. [Suspect]
     Active Substance: NALBUPHINE HYDROCHLORIDE
     Indication: MIGRAINE
     Dosage: UNK, EVERY THREE TO SIX HOURS
     Dates: start: 1994, end: 20200220
  3. NALBUPHINE HYDROCHLORIDE. [Suspect]
     Active Substance: NALBUPHINE HYDROCHLORIDE
     Indication: PAIN
  4. NALBUPHINE HYDROCHLORIDE. [Suspect]
     Active Substance: NALBUPHINE HYDROCHLORIDE
     Indication: NERVE COMPRESSION
  5. NALBUPHINE HYDROCHLORIDE. [Suspect]
     Active Substance: NALBUPHINE HYDROCHLORIDE
     Indication: INTERVERTEBRAL DISC PROTRUSION
     Dosage: 1 ML, EVERY 3?6 HOURS INJECTION
  6. NALBUPHINE HYDROCHLORIDE. [Suspect]
     Active Substance: NALBUPHINE HYDROCHLORIDE
     Indication: PATELLA FRACTURE
     Dosage: 1 ML, 4X/DAY
     Route: 058

REACTIONS (7)
  - Feeling abnormal [Unknown]
  - Immune system disorder [Unknown]
  - Intentional product use issue [Unknown]
  - Sneezing [Unknown]
  - Blindness [Not Recovered/Not Resolved]
  - Illness [Unknown]
  - Expired product administered [Unknown]

NARRATIVE: CASE EVENT DATE: 2020
